FAERS Safety Report 19762739 (Version 1)
Quarter: 2021Q3

REPORT INFORMATION
  Report Type: Spontaneous
  Country: CN (occurrence: CN)
  Receive Date: 20210828
  Receipt Date: 20210828
  Transmission Date: 20211014
  Serious: Yes (Other)
  Sender: FDA-Public Use
  Company Number: CN-ROCHE-2896607

PATIENT
  Age: 53 Year
  Sex: Female

DRUGS (12)
  1. HERCEPTIN [Suspect]
     Active Substance: TRASTUZUMAB
     Indication: BREAST CANCER STAGE IV
     Route: 065
  2. DOCETAXEL. [Concomitant]
     Active Substance: DOCETAXEL
     Indication: METASTASES TO LUNG
     Dosage: ON 12 MAY 2020, 04 JUN 2020, 28 JUN 2020, 04 AUG 2020, 26 AUG 2020 AND 16 SEP 2020, ON DAY 2
  3. PERJETA [Suspect]
     Active Substance: PERTUZUMAB
     Indication: METASTASES TO LUNG
  4. DOCETAXEL. [Concomitant]
     Active Substance: DOCETAXEL
     Indication: BREAST CANCER STAGE IV
  5. HERCEPTIN [Suspect]
     Active Substance: TRASTUZUMAB
     Indication: METASTASES TO LYMPH NODES
  6. PERJETA [Suspect]
     Active Substance: PERTUZUMAB
     Indication: METASTASES TO LYMPH NODES
     Route: 065
  7. APATINIB MESYLATE [Concomitant]
     Active Substance: APATINIB
     Indication: BREAST CANCER STAGE IV
  8. DOCETAXEL. [Concomitant]
     Active Substance: DOCETAXEL
     Indication: METASTASES TO LYMPH NODES
  9. APATINIB MESYLATE [Concomitant]
     Active Substance: APATINIB
     Indication: METASTASES TO LYMPH NODES
     Dates: start: 20210501
  10. HERCEPTIN [Suspect]
     Active Substance: TRASTUZUMAB
     Indication: METASTASES TO LUNG
  11. PERJETA [Suspect]
     Active Substance: PERTUZUMAB
     Indication: BREAST CANCER STAGE IV
  12. APATINIB MESYLATE [Concomitant]
     Active Substance: APATINIB
     Indication: METASTASES TO LUNG

REACTIONS (3)
  - Myelosuppression [Unknown]
  - Ejection fraction decreased [Unknown]
  - Gastrointestinal disorder [Unknown]

NARRATIVE: CASE EVENT DATE: 2020
